FAERS Safety Report 5644289-X (Version None)
Quarter: 2008Q1

REPORT INFORMATION
  Report Type: 
  Country: None (occurrence: None)
  Receive Date: 20080229
  Receipt Date: 20080226
  Transmission Date: 20080703
  Serious: Yes (Death)
  Sender: FDA-Public Use
  Company Number: PHHO2008AR02751

PATIENT
  Age: 45 Year
  Sex: Female
  Weight: 56 kg

DRUGS (2)
  1. RAD [Suspect]
     Indication: HEART TRANSPLANT
     Dosage: 1 MG, BID
     Route: 048
     Dates: start: 20070807
  2. CYCLOSPORINE [Suspect]
     Indication: HEART TRANSPLANT
     Dosage: 40 MG, UNK
     Route: 048
     Dates: start: 20070807

REACTIONS (1)
  - DISEASE PROGRESSION [None]
